FAERS Safety Report 22133764 (Version 2)
Quarter: 2023Q2

REPORT INFORMATION
  Report Type: Spontaneous
  Country: BG (occurrence: None)
  Receive Date: 20230324
  Receipt Date: 20230410
  Transmission Date: 20230722
  Serious: Yes (Other)
  Sender: FDA-Public Use
  Company Number: 2023A068735

PATIENT
  Age: 4105 Week
  Sex: Male

DRUGS (1)
  1. TAGRISSO [Suspect]
     Active Substance: OSIMERTINIB
     Indication: Non-small cell lung cancer metastatic
     Route: 048
     Dates: start: 20211011, end: 20230126

REACTIONS (2)
  - Metastases to central nervous system [Unknown]
  - Metastases to peritoneum [Unknown]

NARRATIVE: CASE EVENT DATE: 20230127
